FAERS Safety Report 6243229-2 (Version None)
Quarter: 2009Q2

REPORT INFORMATION
  Report Type: 
  Country: None (occurrence: None)
  Receive Date: 20090622
  Receipt Date: 20090622
  Transmission Date: 20091009
  Serious: Yes (Hospitalization)
  Sender: FDA-Public Use
  Company Number: None

PATIENT
  Sex: Male
  Weight: 70.3075 kg

DRUGS (1)
  1. PROVIGIL [Suspect]
     Indication: SLEEP DISORDER
     Dates: start: 20081207, end: 20081221

REACTIONS (6)
  - BURNING SENSATION [None]
  - DYSPEPSIA [None]
  - EYE IRRITATION [None]
  - PAIN [None]
  - SWELLING FACE [None]
  - VISUAL IMPAIRMENT [None]
